FAERS Safety Report 15341774 (Version 2)
Quarter: 2019Q4

REPORT INFORMATION
  Report Type: Spontaneous
  Country: FR (occurrence: FR)
  Receive Date: 20180901
  Receipt Date: 20191004
  Transmission Date: 20200122
  Serious: Yes (Hospitalization)
  Sender: FDA-Public Use
  Company Number: FR-AUROBINDO-AUR-APL-2018-044004

PATIENT
  Age: 78 Year
  Sex: Female

DRUGS (5)
  1. CLAMOXYL (AMOXICILLIN SODIUM) [Suspect]
     Active Substance: AMOXICILLIN SODIUM
     Indication: PYREXIA
     Dosage: UNK
     Route: 048
     Dates: start: 20160512, end: 20160519
  2. OMNIPAQUE [Suspect]
     Active Substance: IOHEXOL
     Indication: COMPUTERISED TOMOGRAM
     Dosage: UNK
     Route: 042
     Dates: start: 20160519, end: 20160519
  3. DRYTEC (TECHNETIUM TC99M GENERATOR) [Suspect]
     Active Substance: TECHNETIUM TC-99M SODIUM PERTECHNETATE
     Indication: BONE SCAN
     Dosage: 1 DOSAGE FORM
     Route: 042
     Dates: start: 20160520, end: 20160520
  4. TRAMADOL HYDROCHLORIDE. [Concomitant]
     Active Substance: TRAMADOL HYDROCHLORIDE
     Indication: PRODUCT USED FOR UNKNOWN INDICATION
     Dosage: UNK
     Route: 048
  5. ESOMEPRAZOLE. [Suspect]
     Active Substance: ESOMEPRAZOLE MAGNESIUM
     Indication: PRODUCT USED FOR UNKNOWN INDICATION
     Dosage: UNK
     Route: 048
     Dates: start: 20160512, end: 20160519

REACTIONS (7)
  - Herpes simplex test positive [Recovered/Resolved]
  - Lymphadenitis [Recovered/Resolved]
  - Hot flush [Recovered/Resolved]
  - Rash maculo-papular [Recovered/Resolved]
  - Pustule [Recovered/Resolved]
  - Pruritus [Recovered/Resolved]
  - Pruritus [Recovered/Resolved]

NARRATIVE: CASE EVENT DATE: 201605
